FAERS Safety Report 15499679 (Version 1)
Quarter: 2018Q4

REPORT INFORMATION
  Report Type: Spontaneous
  Country: US (occurrence: US)
  Receive Date: 20181008
  Receipt Date: 20181008
  Transmission Date: 20190205
  Serious: Yes (Hospitalization)
  Sender: FDA-Public Use
  Company Number: None

PATIENT
  Age: 8 Year
  Sex: Female

DRUGS (10)
  1. CREON, [Concomitant]
  2. K-PHOS [Concomitant]
     Active Substance: POTASSIUM PHOSPHATE, MONOBASIC
  3. OMNITROPE [Suspect]
     Active Substance: SOMATROPIN
     Indication: BODY HEIGHT BELOW NORMAL
     Route: 058
     Dates: start: 20170811
  4. LEVOCARNITIN SOL [Concomitant]
  5. POTASSIUM [Concomitant]
     Active Substance: POTASSIUM
  6. PROCYSBI [Concomitant]
     Active Substance: CYSTEAMINE BITARTRATE
  7. LEVOTHYROXIN [Concomitant]
     Active Substance: LEVOTHYROXINE
  8. MULTIVITAMIN [Concomitant]
     Active Substance: VITAMINS
  9. SODIUM CITRA GRA DIHYDRAT [Concomitant]
  10. CYSTARAN [Concomitant]
     Active Substance: CYSTEAMINE HYDROCHLORIDE

REACTIONS (5)
  - Optic nerve disorder [None]
  - Abdominal pain upper [None]
  - Back pain [None]
  - Balance disorder [None]
  - Cerebral disorder [None]

NARRATIVE: CASE EVENT DATE: 20180914
